FAERS Safety Report 18729478 (Version 1)
Quarter: 2021Q1

REPORT INFORMATION
  Report Type: Spontaneous
  Country: US (occurrence: US)
  Receive Date: 20210111
  Receipt Date: 20210111
  Transmission Date: 20210419
  Serious: Yes (Other)
  Sender: FDA-Public Use
  Company Number: None

PATIENT
  Age: 37 Year
  Sex: Female

DRUGS (2)
  1. PACITAXEL [Concomitant]
     Active Substance: PACLITAXEL
     Dates: start: 20201226
  2. PACLITAXEL. [Suspect]
     Active Substance: PACLITAXEL
     Indication: BREAST CANCER
     Route: 017
     Dates: start: 20201226

REACTIONS (8)
  - Glassy eyes [None]
  - Dyspnoea [None]
  - Throat tightness [None]
  - Eye swelling [None]
  - Chest discomfort [None]
  - Tremor [None]
  - Flushing [None]
  - Paraesthesia [None]

NARRATIVE: CASE EVENT DATE: 20201226
